FAERS Safety Report 20365116 (Version 1)
Quarter: 2022Q1

REPORT INFORMATION
  Report Type: Spontaneous
  Country: FR (occurrence: FR)
  Receive Date: 20220122
  Receipt Date: 20220122
  Transmission Date: 20220424
  Serious: Yes (Other)
  Sender: FDA-Public Use
  Company Number: None

PATIENT
  Age: 77 Year
  Sex: Female
  Weight: 53.5 kg

DRUGS (5)
  1. PACLITAXEL [Suspect]
     Active Substance: PACLITAXEL
     Indication: Ovarian cancer
     Dosage: 6 MG/ML CONCENTRATE FOR SOLUTION FOR INFUSION?175MG/M2
     Route: 042
     Dates: start: 20211201, end: 20211201
  2. CARBOPLATIN [Concomitant]
     Active Substance: CARBOPLATIN
     Indication: Ovarian cancer
     Dosage: 10 MG/ML, SOLUTION FOR INFUSION?AUC 5
     Route: 042
     Dates: start: 20211201, end: 20211201
  3. ONDANSETRON [Concomitant]
     Active Substance: ONDANSETRON
     Indication: Chemotherapy side effect prophylaxis
     Dosage: 2MG/ML, INJECTABLE SOLUTION?8 MG
     Route: 042
     Dates: start: 20211201, end: 20211201
  4. POLARAMINE [Concomitant]
     Active Substance: DEXCHLORPHENIRAMINE MALEATE
     Indication: Chemotherapy side effect prophylaxis
     Dosage: 5MG/1ML, INJECTABLE SOLUTION?5 MG
     Route: 042
     Dates: start: 20211201, end: 20211201
  5. FAMOTIDINE [Concomitant]
     Active Substance: FAMOTIDINE
     Indication: Chemotherapy side effect prophylaxis
     Dosage: 20 MG FILM-COATED TABLETS
     Route: 048
     Dates: start: 20211201, end: 20211201

REACTIONS (1)
  - Anaphylactoid reaction [Recovered/Resolved]

NARRATIVE: CASE EVENT DATE: 20211201
